FAERS Safety Report 15645737 (Version 2)
Quarter: 2019Q2

REPORT INFORMATION
  Report Type: Spontaneous
  Country: US (occurrence: US)
  Receive Date: 20181121
  Receipt Date: 20190424
  Transmission Date: 20190711
  Serious: No
  Sender: FDA-Public Use
  Company Number: US-ACTELION-A-NJ2018-181132

PATIENT
  Sex: Female
  Weight: 54.42 kg

DRUGS (2)
  1. OPSUMIT [Suspect]
     Active Substance: MACITENTAN
     Indication: PULMONARY ARTERIAL HYPERTENSION
     Dosage: 10 MG, QD
     Route: 048
     Dates: start: 20181001
  2. TADALAFIL. [Concomitant]
     Active Substance: TADALAFIL

REACTIONS (5)
  - Pyrexia [Unknown]
  - Pulmonary congestion [Unknown]
  - Pain [Unknown]
  - Haemoglobin decreased [Unknown]
  - Cough [Unknown]
